FAERS Safety Report 5784585-9 (Version None)
Quarter: 2008Q2

REPORT INFORMATION
  Report Type: 
  Country: None (occurrence: None)
  Receive Date: 20080624
  Receipt Date: 20080617
  Transmission Date: 20081010
  Serious: Yes (Hospitalization)
  Sender: FDA-Public Use
  Company Number: KR-AVENTIS-200815785GDDC

PATIENT
  Age: 59 Year
  Weight: 54.9 kg

DRUGS (3)
  1. DOCETAXEL [Suspect]
     Route: 042
     Dates: start: 20070820, end: 20070912
  2. ERDOSTEIN [Concomitant]
     Indication: COUGH
     Route: 048
     Dates: start: 20070919, end: 20071128
  3. ITOPRIDE [Concomitant]
     Route: 048
     Dates: start: 20070919, end: 20071128

REACTIONS (4)
  - HAEMOPTYSIS [None]
  - OESOPHAGEAL FISTULA [None]
  - PNEUMONIA [None]
  - PRODUCTIVE COUGH [None]
